FAERS Safety Report 20278929 (Version 4)
Quarter: 2022Q1

REPORT INFORMATION
  Report Type: Report from Study
  Country: BE (occurrence: BE)
  Receive Date: 20220103
  Receipt Date: 20220324
  Transmission Date: 20220423
  Serious: No
  Sender: FDA-Public Use
  Company Number: BE-NOVARTISPH-NVSC2021BE300079

PATIENT
  Sex: Female

DRUGS (1)
  1. HYRIMOZ [Suspect]
     Active Substance: ADALIMUMAB-ADAZ
     Indication: Inflammatory bowel disease
     Dosage: 40 MG, Q2W
     Route: 065

REACTIONS (2)
  - Arthritis [Unknown]
  - Gastrointestinal disorder [Unknown]
